FAERS Safety Report 8965974 (Version 3)
Quarter: 2013Q1

REPORT INFORMATION
  Report Type: Spontaneous
  Country: US (occurrence: US)
  Receive Date: 20121214
  Receipt Date: 20130114
  Transmission Date: 20140127
  Serious: Yes (Death, Hospitalization)
  Sender: FDA-Public Use
  Company Number: US-GENZYME-POMP-1002656

PATIENT
  Age: 71 Year
  Sex: Female

DRUGS (5)
  1. LUMIZYME [Suspect]
     Indication: GLYCOGEN STORAGE DISEASE TYPE II
     Dosage: 1000 MG, Q2W
     Route: 042
     Dates: start: 20121014, end: 20121128
  2. LUMIZYME [Suspect]
     Dosage: UNK
     Route: 042
     Dates: start: 20111228
  3. TYLENOL [Concomitant]
     Indication: PREMEDICATION
     Dosage: 1000 MG, Q2W
  4. BENADRYL [Concomitant]
     Indication: PREMEDICATION
     Dosage: 25 MG, Q2W
  5. XANAX [Concomitant]
     Indication: PREMEDICATION
     Dosage: 0.5 MG, Q2W

REACTIONS (1)
  - Pneumonia [Fatal]
